FAERS Safety Report 6571542-8 (Version None)
Quarter: 2010Q1

REPORT INFORMATION
  Report Type: 
  Country: None (occurrence: None)
  Receive Date: 20100205
  Receipt Date: 20100202
  Transmission Date: 20100710
  Serious: Yes (Death)
  Sender: FDA-Public Use
  Company Number: US-AMGEN-US322750

PATIENT
  Sex: Female
  Weight: 54.5 kg

DRUGS (8)
  1. ARANESP [Suspect]
     Indication: ANAEMIA
     Route: 065
     Dates: start: 20070601
  2. FEXOFENADINE [Concomitant]
     Route: 065
  3. ADVAIR DISKUS 100/50 [Concomitant]
     Route: 065
  4. DETROL [Concomitant]
     Route: 065
  5. ATACAND [Concomitant]
     Route: 065
  6. CRESTOR [Concomitant]
     Route: 065
  7. PREMARIN [Concomitant]
  8. ASTELIN [Concomitant]

REACTIONS (1)
  - ACUTE MYELOID LEUKAEMIA [None]
